FAERS Safety Report 6844575-1 (Version None)
Quarter: 2010Q3

REPORT INFORMATION
  Report Type: 
  Country: None (occurrence: None)
  Receive Date: 20100715
  Receipt Date: 20100706
  Transmission Date: 20110219
  Serious: Yes (Hospitalization, Other)
  Sender: FDA-Public Use
  Company Number: BR-SANOFI-AVENTIS-2010SA039696

PATIENT
  Sex: Male

DRUGS (8)
  1. LANTUS [Suspect]
     Indication: TYPE 2 DIABETES MELLITUS
     Route: 058
  2. AUTOPEN 24 [Suspect]
  3. LASIX [Concomitant]
  4. DIGOXIN [Concomitant]
     Route: 048
  5. HYDROCHLOROTHIAZIDE [Concomitant]
     Route: 048
  6. VITAMIN B [Concomitant]
     Route: 048
  7. GLUCERNA ^ROSS^ [Concomitant]
     Route: 048
  8. HUMALOG [Concomitant]
     Indication: DIABETES MELLITUS INADEQUATE CONTROL
     Dosage: 4IU(BREAKFAST)6IU(LUNCH)2IU(DINNER)
     Route: 058

REACTIONS (4)
  - CARDIOMEGALY [None]
  - HYPERGLYCAEMIA [None]
  - HYPOGLYCAEMIA [None]
  - PNEUMONIA [None]
